FAERS Safety Report 12776871 (Version 3)
Quarter: 2016Q4

REPORT INFORMATION
  Report Type: Spontaneous
  Country: RU (occurrence: RU)
  Receive Date: 20160923
  Receipt Date: 20161020
  Transmission Date: 20170207
  Serious: Yes (Life-Threatening)
  Sender: FDA-Public Use
  Company Number: RU-SA-2016SA173966

PATIENT
  Age: 66 Year
  Sex: Male

DRUGS (2)
  1. ELOXATIN [Suspect]
     Active Substance: OXALIPLATIN
     Indication: GASTROINTESTINAL CARCINOMA
     Route: 042
     Dates: start: 20160919, end: 20160919
  2. EMESET [Concomitant]
     Active Substance: ONDANSETRON HYDROCHLORIDE
     Route: 042

REACTIONS (3)
  - Circulatory collapse [Recovered/Resolved]
  - Blood pressure decreased [Recovered/Resolved]
  - Loss of consciousness [Recovered/Resolved]

NARRATIVE: CASE EVENT DATE: 20160919
